FAERS Safety Report 12708488 (Version 2)
Quarter: 2017Q1

REPORT INFORMATION
  Report Type: Spontaneous
  Country: US (occurrence: US)
  Receive Date: 20160901
  Receipt Date: 20170313
  Transmission Date: 20170428
  Serious: No
  Sender: FDA-Public Use
  Company Number: US-GLAXOSMITHKLINE-US2016123623

PATIENT
  Age: 67 Year
  Sex: Female

DRUGS (5)
  1. BUPROPION. [Concomitant]
     Active Substance: BUPROPION
  2. ADVAIR HFA [Suspect]
     Active Substance: FLUTICASONE PROPIONATE\SALMETEROL XINAFOATE
     Indication: ASTHMA
     Dosage: 2 PUFF(S), BID
     Route: 055
     Dates: start: 201608, end: 201608
  3. VENTOLIN HFA [Concomitant]
     Active Substance: ALBUTEROL SULFATE
  4. ADVAIR DISKUS [Suspect]
     Active Substance: FLUTICASONE PROPIONATE\SALMETEROL XINAFOATE
     Indication: ASTHMA
     Dosage: 1 PUFF(S), BID
     Route: 055
  5. NASACORT [Concomitant]
     Active Substance: TRIAMCINOLONE ACETONIDE

REACTIONS (12)
  - Product quality issue [Unknown]
  - Cough [Recovered/Resolved]
  - Product cleaning inadequate [Unknown]
  - Reaction to drug excipients [Not Recovered/Not Resolved]
  - Device use error [Unknown]
  - Abdominal discomfort [Not Recovered/Not Resolved]
  - Lung disorder [Recovered/Resolved]
  - Wrong technique in product usage process [Unknown]
  - Dyspnoea [Recovered/Resolved]
  - Emergency care [Recovered/Resolved]
  - Nasopharyngitis [Recovered/Resolved]
  - Chest discomfort [Recovered/Resolved]

NARRATIVE: CASE EVENT DATE: 201608
